FAERS Safety Report 11037526 (Version 1)
Quarter: 2015Q2

REPORT INFORMATION
  Report Type: Spontaneous
  Country: DE (occurrence: DE)
  Receive Date: 20150416
  Receipt Date: 20150416
  Transmission Date: 20150821
  Serious: Yes (Life-Threatening, Hospitalization, Other)
  Sender: FDA-Public Use
  Company Number: DE-WATSON-2015-07505

PATIENT
  Age: 7 Year
  Sex: Female

DRUGS (5)
  1. METHOTREXATE (METHOTREXATE SODIUM) [Suspect]
     Active Substance: METHOTREXATE SODIUM
     Indication: B PRECURSOR TYPE ACUTE LEUKAEMIA
     Dosage: 12 MG, 1/WEEK
     Route: 037
  2. VINCRISTINE (UNKNOWN) [Suspect]
     Active Substance: VINCRISTINE
     Indication: B PRECURSOR TYPE ACUTE LEUKAEMIA
     Dosage: 1.5 MG/M2, 1/WEEK
     Route: 042
  3. METHYLPREDNISOLONE (UNKNOWN) [Suspect]
     Active Substance: METHYLPREDNISOLONE
     Indication: B PRECURSOR TYPE ACUTE LEUKAEMIA
     Dosage: 60 MG/M2, DAILY
     Route: 048
  4. NITROUS OXIDE W/OXYGEN [Interacting]
     Active Substance: NITROUS OXIDE\OXYGEN
     Indication: ANAESTHESIA PROCEDURE
     Dosage: 2 DF, TOTAL
     Route: 055
  5. DAUNORUBICIN [Suspect]
     Active Substance: DAUNORUBICIN
     Indication: B PRECURSOR TYPE ACUTE LEUKAEMIA
     Dosage: 36 MG/M2, 1/WEEK
     Route: 042

REACTIONS (7)
  - Dysarthria [Recovered/Resolved]
  - Somnolence [Recovered/Resolved]
  - Neutropenia [Unknown]
  - Neurotoxicity [Recovered/Resolved with Sequelae]
  - Tetany [Recovered/Resolved]
  - Ataxia [Recovered/Resolved]
  - Drug interaction [Recovered/Resolved]
